FAERS Safety Report 5204027-1 (Version None)
Quarter: 2007Q1

REPORT INFORMATION
  Report Type: 
  Country: None (occurrence: None)
  Receive Date: 20070110
  Receipt Date: 20051107
  Transmission Date: 20070707
  Serious: Yes (Disabling)
  Sender: FDA-Public Use
  Company Number: US-BRISTOL-MYERS SQUIBB COMPANY-13143862

PATIENT
  Age: 54 Year
  Sex: Male

DRUGS (3)
  1. ABILIFY [Suspect]
     Indication: SCHIZOPHRENIA, PARANOID TYPE
     Route: 048
     Dates: start: 20050901, end: 20050901
  2. ABILIFY [Suspect]
     Route: 048
     Dates: start: 20050901, end: 20051010
  3. CELEXA [Concomitant]

REACTIONS (1)
  - PRIAPISM [None]
